FAERS Safety Report 5329440-3 (Version None)
Quarter: 2007Q2

REPORT INFORMATION
  Report Type: 
  Country: None (occurrence: None)
  Receive Date: 20070221
  Receipt Date: 20060316
  Transmission Date: 20071010
  Serious: Yes (Other)
  Sender: FDA-Public Use
  Company Number: BDI-008045

PATIENT
  Age: 44 Year
  Sex: Male

DRUGS (4)
  1. ISOVUE-300 [Suspect]
     Indication: ABDOMINAL PAIN UPPER
     Dosage: 150 ML ONCE IV
     Route: 042
     Dates: start: 20060315, end: 20060315
  2. ISOVUE-300 [Suspect]
     Indication: COMPUTERISED TOMOGRAM
     Dosage: 150 ML ONCE IV
     Route: 042
     Dates: start: 20060315, end: 20060315
  3. NEXIUM [Concomitant]
  4. ASCORBIC ACID [Concomitant]

REACTIONS (7)
  - CYANOSIS [None]
  - GENERALISED ERYTHEMA [None]
  - HYPERHIDROSIS [None]
  - PRURITUS [None]
  - SKIN WARM [None]
  - SWELLING FACE [None]
  - URTICARIA [None]
